FAERS Safety Report 6216995-X (Version None)
Quarter: 2009Q2

REPORT INFORMATION
  Report Type: 
  Country: None (occurrence: None)
  Receive Date: 20090604
  Receipt Date: 20090526
  Transmission Date: 20091009
  Serious: Yes (Hospitalization)
  Sender: FDA-Public Use
  Company Number: 09ES001590

PATIENT
  Age: 50 Year
  Sex: Female

DRUGS (5)
  1. IBUPROFEN [Suspect]
     Indication: SINUSITIS
     Dosage: SINGLE, ORAL
     Route: 048
  2. AMOXICILLIN W/CLAVULANATE POTASSIUM(AMOXICILLIN, CLAVULANATE POTASSIUM [Suspect]
     Indication: SINUSITIS
     Dosage: SINGLE, ORAL
     Route: 048
  3. METAMIZOL (METAMIZOLE MAGNESIUM) [Suspect]
     Indication: SINUSITIS
     Dosage: SINGLE, INTRAMUSCULAR
     Route: 030
  4. SALMETEROL (SALMETEROL) [Concomitant]
  5. FLUTICASONE (FLUTICASONE PROPIONATE) [Concomitant]

REACTIONS (16)
  - ACUTE CORONARY SYNDROME [None]
  - ANALGESIC ASTHMA SYNDROME [None]
  - ANAPHYLACTIC REACTION [None]
  - ANAPHYLACTIC SHOCK [None]
  - CHEST PAIN [None]
  - DIZZINESS [None]
  - DRUG INTOLERANCE [None]
  - ELECTROCARDIOGRAM ST SEGMENT DEPRESSION [None]
  - ELECTROCARDIOGRAM ST SEGMENT ELEVATION [None]
  - HISTAMINE LEVEL DECREASED [None]
  - HYPOXIA [None]
  - MYOCARDIAL INFARCTION [None]
  - PALPITATIONS [None]
  - SINUS BRADYCARDIA [None]
  - TRYPTASE INCREASED [None]
  - VENTRICULAR TACHYCARDIA [None]
